FAERS Safety Report 18406391 (Version 1)
Quarter: 2020Q4

REPORT INFORMATION
  Report Type: Spontaneous
  Country: US (occurrence: US)
  Receive Date: 20201020
  Receipt Date: 20201020
  Transmission Date: 20210114
  Serious: Yes (Other)
  Sender: FDA-Public Use
  Company Number: US-LUPIN PHARMACEUTICALS INC.-2020-05962

PATIENT
  Age: 8 Decade
  Sex: Female

DRUGS (5)
  1. FLUOROURACIL. [Suspect]
     Active Substance: FLUOROURACIL
     Indication: ACTINIC KERATOSIS
     Dosage: UNK
     Route: 065
  2. CALCIPOTRIENE. [Suspect]
     Active Substance: CALCIPOTRIENE
     Indication: ACTINIC KERATOSIS
     Dosage: UNK
     Route: 065
  3. MYCOPHENOLATE MOFETIL. [Concomitant]
     Active Substance: MYCOPHENOLATE MOFETIL
     Indication: SCLERODERMA
     Dosage: 3000 MILLIGRAM, QD
     Route: 065
  4. CALCIPOTRIENE. [Suspect]
     Active Substance: CALCIPOTRIENE
     Indication: SCAR
  5. FLUOROURACIL. [Suspect]
     Active Substance: FLUOROURACIL
     Indication: SCAR

REACTIONS (1)
  - Drug ineffective [Unknown]
